FAERS Safety Report 7483903-3 (Version None)
Quarter: 2011Q2

REPORT INFORMATION
  Report Type: 
  Country: None (occurrence: None)
  Receive Date: 20110509
  Receipt Date: 20110428
  Transmission Date: 20111010
  Serious: Yes (Hospitalization)
  Sender: FDA-Public Use
  Company Number: 2011-1311

PATIENT
  Age: 77 Year
  Sex: Female

DRUGS (1)
  1. APO-GO (APOMORPHINE HYDROCHLORIDE) (APOMORPHINE HYDROCHLORIDE) [Suspect]
     Indication: PRODUCT USED FOR UNKNOWN INDICATION
     Dosage: A BASAL RATE OF 5.5MG, BOLUS OF 4MG (CONTINUOUS 7:00 TO 22:00),SUBCUTANEOUS
     Route: 058
     Dates: start: 20090818

REACTIONS (1)
  - RESPIRATORY DISORDER [None]
